FAERS Safety Report 9321338 (Version 1)
Quarter: 2013Q2

REPORT INFORMATION
  Report Type: Spontaneous
  Country: IT (occurrence: None)
  Receive Date: 20130528
  Receipt Date: 20130528
  Transmission Date: 20140414
  Serious: Yes (Death, Other)
  Sender: FDA-Public Use
  Company Number: 2013P1006129

PATIENT
  Age: 37 Year
  Sex: Male

DRUGS (5)
  1. MORPHINE [Suspect]
     Dates: end: 201103
  2. CODEINE [Suspect]
     Dates: end: 201103
  3. DEXTROMETHORPHAN [Suspect]
     Dates: end: 201103
  4. METHADONE [Suspect]
     Dates: end: 201103
  5. CAFFEINE [Suspect]
     Dates: end: 201103

REACTIONS (3)
  - Respiratory depression [None]
  - Drug interaction [None]
  - Drug abuse [None]
